FAERS Safety Report 11111211 (Version 6)
Quarter: 2016Q4

REPORT INFORMATION
  Report Type: Spontaneous
  Country: US (occurrence: US)
  Receive Date: 20150513
  Receipt Date: 20161111
  Transmission Date: 20170206
  Serious: Yes (Hospitalization, Other)
  Sender: FDA-Public Use
  Company Number: US-ABBVIE-15P-163-1387039-00

PATIENT
  Sex: Female

DRUGS (3)
  1. INSULIN [Concomitant]
     Active Substance: INSULIN NOS
     Indication: PANCREATECTOMY
     Dosage: HIGH DOSES
  2. CREON [Suspect]
     Active Substance: PANCRELIPASE AMYLASE\PANCRELIPASE LIPASE\PANCRELIPASE PROTEASE
     Indication: PANCREATIC INSUFFICIENCY
     Dosage: 1 PILL EVERY NIGHT
     Route: 065
  3. INSULIN [Concomitant]
     Active Substance: INSULIN NOS
     Indication: DIABETES MELLITUS

REACTIONS (12)
  - Hospitalisation [Unknown]
  - Procedural pain [Unknown]
  - Hernia [Not Recovered/Not Resolved]
  - Discomfort [Unknown]
  - Intestinal obstruction [Unknown]
  - Intestinal obstruction [Unknown]
  - Dyspepsia [Unknown]
  - Intra-abdominal fluid collection [Unknown]
  - Drug prescribing error [Recovered/Resolved]
  - Nausea [Unknown]
  - Unevaluable event [Unknown]
  - Incorrect dose administered [Unknown]

NARRATIVE: CASE EVENT DATE: 201501
